FAERS Safety Report 6572349-8 (Version None)
Quarter: 2010Q1

REPORT INFORMATION
  Report Type: 
  Country: None (occurrence: None)
  Receive Date: 20100205
  Receipt Date: 20100203
  Transmission Date: 20100710
  Serious: Yes (Death, Other)
  Sender: FDA-Public Use
  Company Number: JP-ELI_LILLY_AND_COMPANY-JP200909005442

PATIENT
  Sex: Male
  Weight: 59.8 kg

DRUGS (7)
  1. ALIMTA [Suspect]
     Indication: LUNG ADENOCARCINOMA
     Dosage: 750 MG, OTHER
     Route: 042
     Dates: start: 20090908, end: 20090908
  2. METHYCOBAL [Concomitant]
     Dosage: 1 MG, DAILY (1/D)
     Route: 030
     Dates: start: 20090901, end: 20090901
  3. PANVITAN [Concomitant]
     Dosage: 1 G, DAILY (1/D)
     Route: 048
     Dates: start: 20090901, end: 20090912
  4. OXYCONTIN [Concomitant]
     Indication: CANCER PAIN
     Dosage: 10 MG, 2/D
     Route: 048
     Dates: start: 20090827, end: 20090830
  5. OXYCONTIN [Concomitant]
     Dosage: 15 MG, DAILY (1/D)
     Route: 048
     Dates: start: 20090831, end: 20090913
  6. OXINORM [Concomitant]
     Indication: CANCER PAIN
     Dosage: 5 MG, AS NEEDED
     Route: 048
     Dates: start: 20090827, end: 20090913
  7. ZOMETA [Concomitant]
     Indication: METASTASES TO BONE
     Dosage: 4 MG, DAILY (1/D)
     Route: 042
     Dates: start: 20090907, end: 20090907

REACTIONS (4)
  - NEUTROPHIL COUNT DECREASED [None]
  - PLATELET COUNT DECREASED [None]
  - PNEUMONIA [None]
  - WHITE BLOOD CELL COUNT DECREASED [None]
